FAERS Safety Report 14680095 (Version 1)
Quarter: 2018Q1

REPORT INFORMATION
  Report Type: Spontaneous
  Country: CN (occurrence: CN)
  Receive Date: 20180326
  Receipt Date: 20180326
  Transmission Date: 20180509
  Serious: Yes (Death, Other)
  Sender: FDA-Public Use
  Company Number: CN-JNJFOC-20180331248

PATIENT
  Age: 12 Year
  Sex: Female
  Weight: 42 kg

DRUGS (3)
  1. VALPROATE MAGNESIUM [Suspect]
     Active Substance: VALPROATE MAGNESIUM
     Indication: EPILEPSY
     Route: 048
     Dates: start: 20160608, end: 20170707
  2. TOPAMAX [Suspect]
     Active Substance: TOPIRAMATE
     Indication: EPILEPSY
     Route: 048
     Dates: start: 20160608, end: 20170707
  3. LAMICTAL [Suspect]
     Active Substance: LAMOTRIGINE
     Indication: EPILEPSY
     Route: 048
     Dates: start: 20170629, end: 20170707

REACTIONS (2)
  - Drug ineffective [Unknown]
  - Completed suicide [Fatal]

NARRATIVE: CASE EVENT DATE: 20170707
